FAERS Safety Report 7388709-1 (Version None)
Quarter: 2011Q2

REPORT INFORMATION
  Report Type: 
  Country: None (occurrence: None)
  Receive Date: 20110401
  Receipt Date: 20110324
  Transmission Date: 20111010
  Serious: Yes (Other)
  Sender: FDA-Public Use
  Company Number: US-US-EMD SERONO, INC.-7050249

PATIENT
  Sex: Female

DRUGS (2)
  1. REBIF [Suspect]
     Indication: PRODUCT USED FOR UNKNOWN INDICATION
     Route: 058
     Dates: start: 20080324
  2. NEURONTIN [Concomitant]

REACTIONS (5)
  - VULVOVAGINAL MYCOTIC INFECTION [None]
  - FUNGAL OESOPHAGITIS [None]
  - URINARY TRACT INFECTION [None]
  - HYPOAESTHESIA [None]
  - OEDEMA PERIPHERAL [None]
